FAERS Safety Report 25614493 (Version 1)
Quarter: 2025Q3

REPORT INFORMATION
  Report Type: Other
  Country: CN (occurrence: CN)
  Receive Date: 20250729
  Receipt Date: 20250729
  Transmission Date: 20251021
  Serious: Yes (Hospitalization, Other)
  Sender: ANI
  Company Number: CN-ANIPHARMA-023820

PATIENT
  Age: 50 Year
  Sex: Female

DRUGS (7)
  1. CIMETIDINE [Suspect]
     Active Substance: CIMETIDINE
     Indication: Gastritis prophylaxis
  2. CYCLOPHOSPHAMIDE [Suspect]
     Active Substance: CYCLOPHOSPHAMIDE
     Indication: Invasive ductal breast carcinoma
     Dates: start: 20230629
  3. EPIRUBICIN [Concomitant]
     Active Substance: EPIRUBICIN
     Indication: Invasive ductal breast carcinoma
     Dates: start: 20230629
  4. NETUPITANT\PALONOSETRON [Concomitant]
     Active Substance: NETUPITANT\PALONOSETRON
     Indication: Prophylaxis of nausea and vomiting
     Route: 048
  5. DEXAMETHASONE [Concomitant]
     Active Substance: DEXAMETHASONE
     Indication: Allergy prophylaxis
  6. DEXRAZOXANE [Concomitant]
     Active Substance: DEXRAZOXANE
     Indication: Cardiovascular event prophylaxis
  7. APREPITANT [Concomitant]
     Active Substance: APREPITANT
     Indication: Product used for unknown indication

REACTIONS (2)
  - Serotonin syndrome [Recovering/Resolving]
  - Drug interaction [Unknown]
